FAERS Safety Report 6004282-4 (Version None)
Quarter: 2008Q4

REPORT INFORMATION
  Report Type: 
  Country: None (occurrence: None)
  Receive Date: 20081216
  Receipt Date: 20081210
  Transmission Date: 20090506
  Serious: Yes (Other)
  Sender: FDA-Public Use
  Company Number: IL-BAYER-200832590GPV

PATIENT
  Age: 36 Year
  Sex: Female

DRUGS (3)
  1. BETAFERON [Suspect]
     Indication: RELAPSING-REMITTING MULTIPLE SCLEROSIS
     Dates: start: 20030706, end: 20080901
  2. BETAFERON [Suspect]
     Dates: start: 20081123
  3. TOPAMAX [Concomitant]
     Indication: MIGRAINE

REACTIONS (1)
  - HEPATIC ENZYME INCREASED [None]
